FAERS Safety Report 5986709-7 (Version None)
Quarter: 2008Q4

REPORT INFORMATION
  Report Type: 
  Country: None (occurrence: None)
  Receive Date: 20081209
  Receipt Date: 20080908
  Transmission Date: 20090506
  Serious: No
  Sender: FDA-Public Use
  Company Number: US-AMGEN-KDL300901

PATIENT
  Sex: Female

DRUGS (17)
  1. ENBREL [Suspect]
     Indication: PSORIATIC ARTHROPATHY
     Route: 058
     Dates: start: 20080806
  2. SLEEPING MEDICATION NOS [Concomitant]
  3. BENADRYL [Concomitant]
  4. LORTAB [Concomitant]
  5. XANAX [Concomitant]
  6. PHENERGAN HCL [Concomitant]
  7. MAXALT [Concomitant]
  8. ABILIFY [Concomitant]
  9. TRILEPTAL [Concomitant]
  10. SEROQUEL [Concomitant]
  11. CHOLESTYRAMINE [Concomitant]
  12. KLONOPIN [Concomitant]
  13. LEVOTHYROXINE SODIUM [Concomitant]
  14. FIBERMED [Concomitant]
  15. ASPIRIN [Concomitant]
  16. VITAMINS [Concomitant]
  17. METFORMIN HCL [Concomitant]

REACTIONS (5)
  - FEELING ABNORMAL [None]
  - INJECTION SITE HAEMATOMA [None]
  - MALAISE [None]
  - PNEUMONIA BACTERIAL [None]
  - PYREXIA [None]
